FAERS Safety Report 13815632 (Version 1)
Quarter: 2017Q3

REPORT INFORMATION
  Report Type: Spontaneous
  Country: GB (occurrence: GB)
  Receive Date: 20170731
  Receipt Date: 20170731
  Transmission Date: 20171127
  Serious: Yes (Other)
  Sender: FDA-Public Use
  Company Number: GB-MYLANLABS-2017M1042662

PATIENT

DRUGS (6)
  1. CLOZARIL [Suspect]
     Active Substance: CLOZAPINE
     Indication: SCHIZOPHRENIA
     Dosage: 100 MG, AM
     Route: 048
     Dates: start: 20050824, end: 20170513
  2. LITHIUM CARBONATE. [Concomitant]
     Active Substance: LITHIUM CARBONATE
     Indication: PSYCHOTIC DISORDER
     Dosage: 400 MG, QD
     Route: 048
     Dates: start: 20170630
  3. EPILIM [Concomitant]
     Active Substance: VALPROATE SODIUM
     Indication: EPILEPSY
     Dosage: 500 MG, AM
     Route: 048
     Dates: start: 20130129
  4. EPILIM [Concomitant]
     Active Substance: VALPROATE SODIUM
     Dosage: 1000 MG, PM
     Route: 048
     Dates: start: 20130129
  5. CLOZARIL [Suspect]
     Active Substance: CLOZAPINE
     Dosage: 350 MG, PM
     Route: 048
     Dates: start: 20050825, end: 20170513
  6. OLANZAPINE. [Concomitant]
     Active Substance: OLANZAPINE
     Indication: PSYCHOTIC DISORDER
     Dosage: 20 MG, QD
     Route: 048
     Dates: start: 20170518

REACTIONS (2)
  - Product use issue [Unknown]
  - Neutropenia [Recovered/Resolved]

NARRATIVE: CASE EVENT DATE: 20161022
